FAERS Safety Report 8103308-1 (Version None)
Quarter: 2012Q1

REPORT INFORMATION
  Report Type: 
  Country: None (occurrence: None)
  Receive Date: 20120127
  Receipt Date: 20120120
  Transmission Date: 20120608
  Serious: Yes (Other)
  Sender: FDA-Public Use
  Company Number: 2012SP004004

PATIENT
  Sex: Female

DRUGS (3)
  1. PEG-INTRON [Suspect]
     Indication: HEPATITIS C
     Dates: start: 20110805
  2. RIBAVIRIN [Suspect]
     Indication: HEPATITIS C
     Dates: start: 20110805
  3. VICTRELIS [Suspect]
     Indication: HEPATITIS C
     Dates: start: 20120112

REACTIONS (9)
  - HYPOTHYROIDISM [None]
  - ABDOMINAL DISTENSION [None]
  - FIBROMYALGIA [None]
  - GASTRIC DISORDER [None]
  - ASTHENIA [None]
  - WEIGHT DECREASED [None]
  - ALOPECIA [None]
  - CONDITION AGGRAVATED [None]
  - DEHYDRATION [None]
